FAERS Safety Report 8138353-3 (Version None)
Quarter: 2012Q1

REPORT INFORMATION
  Report Type: 
  Country: None (occurrence: None)
  Receive Date: 20120213
  Receipt Date: 20120131
  Transmission Date: 20120608
  Serious: Yes (Hospitalization)
  Sender: FDA-Public Use
  Company Number: DSA_55032_2012

PATIENT
  Age: 59 Year
  Sex: Male

DRUGS (3)
  1. NAPROXEN [Concomitant]
  2. BUPROPION HCL [Suspect]
     Indication: PRODUCT USED FOR UNKNOWN INDICATION
     Dosage: (DF)
  3. OMEPRAZOLE [Concomitant]

REACTIONS (4)
  - ALCOHOL ABUSE [None]
  - SUICIDAL IDEATION [None]
  - DEPRESSION [None]
  - PARANOIA [None]
